FAERS Safety Report 10305846 (Version 1)
Quarter: 2014Q3

REPORT INFORMATION
  Report Type: Spontaneous
  Country: US (occurrence: US)
  Receive Date: 20140715
  Receipt Date: 20140715
  Transmission Date: 20150326
  Serious: Yes (Other)
  Sender: FDA-Public Use
  Company Number: US-PFIZER INC-2014193398

PATIENT
  Age: 59 Year
  Sex: Female

DRUGS (1)
  1. ATORVASTATIN CALCIUM. [Suspect]
     Active Substance: ATORVASTATIN CALCIUM
     Dosage: UNK

REACTIONS (4)
  - Drug hypersensitivity [Unknown]
  - Muscular weakness [Unknown]
  - Asthenia [Unknown]
  - Paralysis [Unknown]
